FAERS Safety Report 8227069-0 (Version None)
Quarter: 2012Q1

REPORT INFORMATION
  Report Type: 
  Country: None (occurrence: None)
  Receive Date: 20120322
  Receipt Date: 20120319
  Transmission Date: 20120608
  Serious: No
  Sender: FDA-Public Use
  Company Number: US-PFIZER INC-2012053082

PATIENT
  Age: 17 Year

DRUGS (1)
  1. ADVIL CONGESTION RELIEF [Suspect]
     Indication: NASOPHARYNGITIS
     Dosage: UNK

REACTIONS (2)
  - MALAISE [None]
  - DRUG INEFFECTIVE [None]
